FAERS Safety Report 4943985-7 (Version None)
Quarter: 2006Q1

REPORT INFORMATION
  Report Type: 
  Country: None (occurrence: None)
  Receive Date: 20060313
  Receipt Date: 20060313
  Transmission Date: 20060701
  Serious: Yes (Other)
  Sender: FDA-Public Use
  Company Number: None

PATIENT
  Sex: Male
  Weight: 77.1115 kg

DRUGS (3)
  1. FLECAINIDE ACETATE [Suspect]
     Indication: ATRIAL FIBRILLATION
     Dosage: 100MG BID
  2. FLECAINIDE ACETATE [Suspect]
     Indication: DISEASE RECURRENCE
     Dosage: 100MG BID
  3. TAMBOCOR [Concomitant]

REACTIONS (3)
  - DRUG INEFFECTIVE [None]
  - MALAISE [None]
  - PHARMACEUTICAL PRODUCT COMPLAINT [None]
